FAERS Safety Report 13601100 (Version 1)
Quarter: 2017Q2

REPORT INFORMATION
  Report Type: Spontaneous
  Country: US (occurrence: US)
  Receive Date: 20170601
  Receipt Date: 20170601
  Transmission Date: 20170830
  Serious: Yes (Hospitalization)
  Sender: FDA-Public Use
  Company Number: US-ELI_LILLY_AND_COMPANY-US201705009538

PATIENT
  Age: 61 Year
  Sex: Male
  Weight: 112 kg

DRUGS (10)
  1. CETUXIMAB. [Suspect]
     Active Substance: CETUXIMAB
     Dosage: 250 MG/M2, WEEKLY (1/W)
     Route: 042
  2. CATAPRES                           /00171102/ [Concomitant]
     Indication: HYPERTENSION
     Dosage: .2 MG, BID
     Route: 065
     Dates: start: 20150317
  3. AVELUMAB [Suspect]
     Active Substance: AVELUMAB
     Route: 042
  4. CETUXIMAB. [Suspect]
     Active Substance: CETUXIMAB
     Indication: TONSIL CANCER
     Dosage: 944 MG, LOADING DOSE
     Route: 042
     Dates: start: 20170501, end: 20170501
  5. AVELUMAB [Suspect]
     Active Substance: AVELUMAB
     Indication: TONSIL CANCER
     Dosage: 10 MG/KG, OVER 1 HOUR D1+15 Q 28 DAYS
     Route: 042
     Dates: start: 20160804, end: 20170406
  6. HYDROCODONE [Concomitant]
     Active Substance: HYDROCODONE
     Indication: PAIN
     Dosage: UNK UNK, UNKNOWN
     Route: 065
     Dates: start: 20160615
  7. HUMALOG [Concomitant]
     Active Substance: INSULIN LISPRO
     Indication: TYPE 2 DIABETES MELLITUS
     Dosage: 20 IU, DAILY
     Route: 065
     Dates: start: 19960719
  8. SYNTHROID [Concomitant]
     Active Substance: LEVOTHYROXINE SODIUM
     Indication: HYPOTHYROIDISM
     Dosage: 100 UG, DAILY
     Route: 065
     Dates: start: 20161117
  9. METOPROLOL SUCCINATE. [Concomitant]
     Active Substance: METOPROLOL SUCCINATE
     Indication: HYPERTENSION
     Dosage: 25 MG, BID
     Route: 065
     Dates: start: 20150317
  10. TAXOL [Concomitant]
     Active Substance: PACLITAXEL
     Indication: TONSIL CANCER
     Dosage: 50 MG/M2, DAYS 1,8 OF 21 DAYS
     Route: 042

REACTIONS (1)
  - Hypersensitivity [Recovered/Resolved]

NARRATIVE: CASE EVENT DATE: 20170501
